FAERS Safety Report 13791176 (Version 3)
Quarter: 2017Q3

REPORT INFORMATION
  Report Type: Report from Study
  Country: US (occurrence: US)
  Receive Date: 20170725
  Receipt Date: 20170828
  Transmission Date: 20171127
  Serious: Yes (Hospitalization)
  Sender: FDA-Public Use
  Company Number: US-PFIZER INC-2017310589

PATIENT
  Age: 12 Year
  Sex: Male
  Weight: 52.6 kg

DRUGS (17)
  1. CRIZOTINIB [Suspect]
     Active Substance: CRIZOTINIB
     Indication: ANAPLASTIC LARGE CELL LYMPHOMA T- AND NULL-CELL TYPES
     Dosage: COURSE A: CYCLES 1, 3 AND 5 (CYCLE= 21 DAYS): 165 MG/M2, BID ON DAYS 1-21
     Route: 048
     Dates: start: 20170404
  2. VP-16 [Concomitant]
     Active Substance: ETOPOSIDE
     Indication: ANAPLASTIC LARGE CELL LYMPHOMA T- AND NULL-CELL TYPES
     Dosage: COURSE A: CYCLES 1, 3 AND 5 (CYCLE= 21 DAYS): 100 MG/M2, OVER 2 HOURS ON DAYS 4 AND 5
     Route: 042
     Dates: start: 20170404
  3. IFOSFAMIDE. [Concomitant]
     Active Substance: IFOSFAMIDE
     Indication: ANAPLASTIC LARGE CELL LYMPHOMA T- AND NULL-CELL TYPES
     Dosage: COURSE A: CYCLES 1, 3 AND 5 (CYCLE= 21 DAYS): 800MG/M2, OVER 60 MIN ON DAYS 1-5
     Route: 042
  4. HYDROCORTISONE. [Concomitant]
     Active Substance: HYDROCORTISONE
     Indication: ANAPLASTIC LARGE CELL LYMPHOMA T- AND NULL-CELL TYPES
     Dosage: PROPHASE (CYCLE = 5 DAYS): 7.5-12 MG IT ON DAY 1 (AGE BASED DOSING)
     Route: 037
     Dates: end: 20170404
  5. CYCLOPHOSPHAMIDE. [Suspect]
     Active Substance: CYCLOPHOSPHAMIDE
     Dosage: COURSE B: CYCLES 2, 4 AND 6 (CYCLE= 21 DAYS): 200 MG/M2, OVER 15-30 MINUTES ON DAYS 1-5
     Route: 042
     Dates: start: 20170502
  6. CYTARABINE. [Concomitant]
     Active Substance: CYTARABINE
     Dosage: COURSE A: CYCLES 1, 3 AND 5: 150 MG/M2, OVER 1-30 MINUTES Q12 HOURS ON DAYS 4 AND 5 (TOTAL 4 DOSES)
     Route: 042
     Dates: start: 20170404
  7. DEXAMETHASONE. [Concomitant]
     Active Substance: DEXAMETHASONE
     Indication: ANAPLASTIC LARGE CELL LYMPHOMA T- AND NULL-CELL TYPES
     Dosage: PROPHASE (CYCLE = 5 DAYS): 5 MG/M2, QD ON DAYS 1-2
     Route: 048
  8. CYTARABINE. [Concomitant]
     Active Substance: CYTARABINE
     Indication: ANAPLASTIC LARGE CELL LYMPHOMA T- AND NULL-CELL TYPES
     Dosage: PROPHASE (CYCLE = 5 DAYS): 15-24MG ON DAY 1 (AGE BASED DOSING)
     Route: 037
  9. CYCLOPHOSPHAMIDE. [Suspect]
     Active Substance: CYCLOPHOSPHAMIDE
     Indication: ANAPLASTIC LARGE CELL LYMPHOMA T- AND NULL-CELL TYPES
     Dosage: PROPHASE (CYCLE = 5 DAYS): 200 MG/M2, OVER 15-30 MINUTES ON DAYS 1 AND 2
     Route: 042
  10. METHOTREXATE SODIUM. [Suspect]
     Active Substance: METHOTREXATE SODIUM
     Indication: ANAPLASTIC LARGE CELL LYMPHOMA T- AND NULL-CELL TYPES
     Dosage: PROPHASE (CYCLE = 5 DAYS): 7.5-12MG ON DAY 1 (AGE BASED DOSING)
     Route: 037
  11. DEXAMETHASONE. [Concomitant]
     Active Substance: DEXAMETHASONE
     Dosage: PROPHASE (CYCLE = 5 DAYS): 5 MG/M2, BID ON DAYS 3-5
     Route: 048
  12. DEXAMETHASONE. [Concomitant]
     Active Substance: DEXAMETHASONE
     Dosage: COURSE B: CYCLES 2, 4 AND 6 (CYCLE= 21 DAYS): 5 MG/M2, BID ON DAYS 1-5
     Dates: start: 20170502
  13. CRIZOTINIB [Suspect]
     Active Substance: CRIZOTINIB
     Dosage: COURSE B: CYCLES 2, 4 AND 6 (CYCLE= 21 DAYS): 165 MG/M2, CYCLIC BID ON DAYS 1-21
     Route: 048
     Dates: start: 20170502
  14. METHOTREXATE SODIUM. [Suspect]
     Active Substance: METHOTREXATE SODIUM
     Dosage: COURSE B: CYCLES 2, 4 AND 6 (CYCLE= 21 DAYS): 3000 MG/M2, OVER 3 HOURS ON DAY 1
     Route: 042
     Dates: start: 20170502
  15. DOXORUBICIN HCL [Suspect]
     Active Substance: DOXORUBICIN HYDROCHLORIDE
     Indication: ANAPLASTIC LARGE CELL LYMPHOMA T- AND NULL-CELL TYPES
     Dosage: COURSE B: CYCLES 2, 4 AND 6 (CYCLE= 21 DAYS): 25 MG/M2, OVER 1-15 MIN ON DAYS 4 AND 5
     Route: 042
     Dates: start: 20170505
  16. METHOTREXATE SODIUM. [Suspect]
     Active Substance: METHOTREXATE SODIUM
     Dosage: COURSE A: CYCLES 1, 3 AND 5 (CYCLE= 21 DAYS): 3000 MG/M2, OVER 3 HOURS ON DAY 1
     Route: 042
     Dates: start: 20170404
  17. DEXAMETHASONE. [Concomitant]
     Active Substance: DEXAMETHASONE
     Dosage: COURSE A: CYCLES 1, 3 AND 5 (CYCLE= 21 DAYS): 5 MG/M2, BID ON DAYS 1-5
     Route: 048
     Dates: start: 20170404

REACTIONS (4)
  - Stomatitis [Recovered/Resolved]
  - Vomiting [Recovered/Resolved]
  - Abdominal pain [Recovered/Resolved]
  - Febrile neutropenia [Recovered/Resolved]

NARRATIVE: CASE EVENT DATE: 20170514
